FAERS Safety Report 21998219 (Version 1)
Quarter: 2023Q1

REPORT INFORMATION
  Report Type: Report from Study
  Country: CO (occurrence: CO)
  Receive Date: 20230216
  Receipt Date: 20230216
  Transmission Date: 20230418
  Serious: Yes (Other)
  Sender: FDA-Public Use
  Company Number: CO-AMGEN-COLSL2022202304

PATIENT
  Age: 47 Year
  Sex: Male

DRUGS (4)
  1. VECTIBIX [Suspect]
     Active Substance: PANITUMUMAB
     Indication: Colorectal cancer metastatic
     Dosage: 420 MILLIGRAM, Q2WK (BIWEEKLY )
     Route: 040
     Dates: start: 20221111
  2. VECTIBIX [Suspect]
     Active Substance: PANITUMUMAB
     Dosage: 420 MILLIGRAM, Q2WK (BIWEEKLY )
     Route: 040
     Dates: start: 20230123
  3. POLYVINYL ALCOHOL [Concomitant]
     Active Substance: POLYVINYL ALCOHOL
     Indication: Product used for unknown indication
     Dosage: UNK, Q12H (APPLY ONE DROP IN EACH EYE EVERY 12 HOURS)
     Route: 065
     Dates: start: 20221118
  4. POLYVINYL ALCOHOL [Concomitant]
     Active Substance: POLYVINYL ALCOHOL
     Dosage: UNK, UNK
     Route: 047

REACTIONS (6)
  - Purpura [Not Recovered/Not Resolved]
  - Rash [Not Recovered/Not Resolved]
  - Dry skin [Not Recovered/Not Resolved]
  - Pruritus [Not Recovered/Not Resolved]
  - Acne [Not Recovered/Not Resolved]
  - Burning sensation [Not Recovered/Not Resolved]

NARRATIVE: CASE EVENT DATE: 20221115
